FAERS Safety Report 9479250 (Version 1)
Quarter: 2013Q3

REPORT INFORMATION
  Report Type: Spontaneous
  Country: US (occurrence: US)
  Receive Date: 20130827
  Receipt Date: 20130827
  Transmission Date: 20140515
  Serious: Yes (Hospitalization, Other)
  Sender: FDA-Public Use
  Company Number: US-ACTAVIS-2013-14830

PATIENT
  Age: 44 Year
  Sex: Female

DRUGS (1)
  1. TAMOXIFEN CITRATE (WATSON LABORATORIES) [Suspect]
     Indication: LOBULAR BREAST CARCINOMA IN SITU
     Dosage: UNK
     Route: 065
     Dates: end: 201108

REACTIONS (3)
  - Budd-Chiari syndrome [Recovered/Resolved]
  - Bacterascites [Unknown]
  - Escherichia infection [Unknown]
